FAERS Safety Report 14751445 (Version 17)
Quarter: 2024Q3

REPORT INFORMATION
  Report Type: Report from Study
  Country: CA (occurrence: CA)
  Receive Date: 20180412
  Receipt Date: 20240818
  Transmission Date: 20241017
  Serious: Yes (Other)
  Sender: NOVARTIS
  Company Number: PHHY2017CA180212

PATIENT
  Age: 35 Year
  Sex: Female

DRUGS (11)
  1. COSENTYX [Suspect]
     Active Substance: SECUKINUMAB
     Indication: Ankylosing spondylitis
     Dosage: 300 MG, QMO
     Route: 058
     Dates: start: 20170819
  2. COSENTYX [Suspect]
     Active Substance: SECUKINUMAB
     Dosage: 300 MG, QMO
     Route: 058
     Dates: start: 20180316
  3. COSENTYX [Suspect]
     Active Substance: SECUKINUMAB
     Dosage: 300 MG, QMO
     Route: 058
     Dates: start: 20180527
  4. COSENTYX [Suspect]
     Active Substance: SECUKINUMAB
     Dosage: 300 MG, QMO
     Route: 058
     Dates: start: 20190510
  5. COSENTYX [Suspect]
     Active Substance: SECUKINUMAB
     Dosage: 450 MG, QMO
     Route: 058
  6. COSENTYX [Suspect]
     Active Substance: SECUKINUMAB
     Dosage: UNK
     Route: 058
     Dates: start: 20220113
  7. COSENTYX [Suspect]
     Active Substance: SECUKINUMAB
     Dosage: 300 MG, QMO
     Route: 058
  8. VOLTAREN [Concomitant]
     Active Substance: DICLOFENAC SODIUM
     Indication: Product used for unknown indication
     Dosage: UNK
     Route: 065
  9. CELEBREX [Concomitant]
     Active Substance: CELECOXIB
     Indication: Product used for unknown indication
     Dosage: UNK
     Route: 065
  10. NAPROXEN [Concomitant]
     Active Substance: NAPROXEN
     Indication: Product used for unknown indication
     Dosage: UNK
     Route: 065
     Dates: start: 1997
  11. INDOMETHACIN [Concomitant]
     Active Substance: INDOMETHACIN
     Indication: Product used for unknown indication
     Dosage: UNK
     Route: 065

REACTIONS (17)
  - Abscess limb [Recovering/Resolving]
  - Ankylosing spondylitis [Unknown]
  - Condition aggravated [Unknown]
  - Discomfort [Unknown]
  - Pain [Unknown]
  - Musculoskeletal stiffness [Unknown]
  - Fatigue [Unknown]
  - Insomnia [Unknown]
  - Hernia [Unknown]
  - Fibromyalgia [Unknown]
  - Off label use [Unknown]
  - Product supply issue [Unknown]
  - Drug ineffective [Unknown]
  - Neck pain [Unknown]
  - Back pain [Unknown]
  - Arthralgia [Unknown]
  - Joint swelling [Unknown]

NARRATIVE: CASE EVENT DATE: 20171215
